FAERS Safety Report 23770087 (Version 1)
Quarter: 2024Q2

REPORT INFORMATION
  Report Type: Spontaneous
  Country: US (occurrence: None)
  Receive Date: 20240422
  Receipt Date: 20240422
  Transmission Date: 20240716
  Serious: No
  Sender: FDA-Public Use
  Company Number: 2024A053182

PATIENT
  Sex: Male
  Weight: 84.4 kg

DRUGS (22)
  1. CALQUENCE [Suspect]
     Active Substance: ACALABRUTINIB
     Indication: B-cell small lymphocytic lymphoma
     Route: 048
     Dates: start: 20211112
  2. AIRBORNE ELDERBERY [Concomitant]
  3. ALBUTEROL SULFATE [Concomitant]
     Active Substance: ALBUTEROL SULFATE
  4. ARGININE [Concomitant]
     Active Substance: ARGININE
  5. ASCORBIC ACID [Concomitant]
     Active Substance: ASCORBIC ACID
  6. BIOTIN [Concomitant]
     Active Substance: BIOTIN
  7. BUSPIRONE [Concomitant]
     Active Substance: BUSPIRONE HYDROCHLORIDE
  8. DOXYCYCLINE [Concomitant]
     Active Substance: DOXYCYCLINE
  9. FAMOTIDINE [Concomitant]
     Active Substance: FAMOTIDINE
  10. FISH OIL [Concomitant]
     Active Substance: FISH OIL
  11. FLONASE [Concomitant]
     Active Substance: FLUTICASONE PROPIONATE
  12. GINGER [Concomitant]
     Active Substance: GINGER
  13. GLIMEPIRIDE [Concomitant]
     Active Substance: GLIMEPIRIDE
  14. JANUVIA [Concomitant]
     Active Substance: SITAGLIPTIN PHOSPHATE
  15. LISINOPRIL [Concomitant]
     Active Substance: LISINOPRIL
  16. METFORMIN [Concomitant]
     Active Substance: METFORMIN HYDROCHLORIDE
  17. DIETARY SUPPLEMENT\HERBALS\MILK THISTLE [Concomitant]
     Active Substance: MILK THISTLE
  18. VITAMINS [Concomitant]
     Active Substance: VITAMINS
  19. OMEPRAZOLE [Concomitant]
     Active Substance: OMEPRAZOLE
  20. QUERCETINM TRICOR [Concomitant]
  21. VITAMIN B [Concomitant]
     Active Substance: VITAMIN B
  22. VITAMIN D3 [Concomitant]
     Active Substance: CHOLECALCIFEROL

REACTIONS (1)
  - Rash macular [Recovering/Resolving]
